FAERS Safety Report 8849331 (Version 2)
Quarter: 2013Q1

REPORT INFORMATION
  Report Type: Spontaneous
  Country: US (occurrence: US)
  Receive Date: 20121017
  Receipt Date: 20130205
  Transmission Date: 20140127
  Serious: Yes (Hospitalization, Other)
  Sender: FDA-Public Use
  Company Number: US-PFIZER INC-2012253189

PATIENT
  Age: 6 Year
  Sex: Male

DRUGS (4)
  1. PHENYTOIN [Suspect]
     Indication: CONVULSION
     Dosage: 50 MG, 2X/DAY
  2. PHENYTOIN [Suspect]
     Indication: HEMIPARESIS
  3. PHENOBARBITAL [Concomitant]
     Indication: CONVULSION
     Dosage: 20 MG, 4X/DAY
  4. PHENOBARBITAL [Concomitant]
     Indication: HEMIPARESIS

REACTIONS (3)
  - Overdose [Recovered/Resolved]
  - Coma [Recovered/Resolved]
  - Toxicity to various agents [Recovered/Resolved]
